FAERS Safety Report 15299004 (Version 1)
Quarter: 2018Q3

REPORT INFORMATION
  Report Type: Spontaneous
  Country: PT (occurrence: PT)
  Receive Date: 20180821
  Receipt Date: 20180821
  Transmission Date: 20181010
  Serious: Yes (Other)
  Sender: FDA-Public Use
  Company Number: PT-TEVA-2018-PT-944531

PATIENT
  Age: 49 Year
  Sex: Male

DRUGS (2)
  1. ENTECAVIR TEVA [Suspect]
     Active Substance: ENTECAVIR
     Indication: HEPATITIS B
     Dosage: .5 MILLIGRAM DAILY; 0.5 MG/DAY; FIRST USE
     Route: 048
     Dates: start: 20180430, end: 20180723
  2. BARACLUDE [Concomitant]
     Active Substance: ENTECAVIR
     Indication: HEPATITIS B
     Route: 048
     Dates: start: 2010

REACTIONS (3)
  - Pruritus [Unknown]
  - Acne [Unknown]
  - Rash pruritic [Unknown]

NARRATIVE: CASE EVENT DATE: 20180502
